APPROVED DRUG PRODUCT: PREDNISONE
Active Ingredient: PREDNISONE
Strength: 5MG
Dosage Form/Route: TABLET;ORAL
Application: A040256 | Product #001 | TE Code: AB
Applicant: PH HEALTH LTD
Approved: Jul 12, 2002 | RLD: No | RS: No | Type: RX